FAERS Safety Report 21743016 (Version 1)
Quarter: 2022Q4

REPORT INFORMATION
  Report Type: Spontaneous
  Country: US (occurrence: US)
  Receive Date: 20221217
  Receipt Date: 20221217
  Transmission Date: 20230112
  Serious: No
  Sender: FDA-Public Use
  Company Number: US-ORGANON-O2212USA000730

PATIENT

DRUGS (1)
  1. REMERON SOLTAB [Suspect]
     Active Substance: MIRTAZAPINE
     Dosage: ONCE TABLET DAILY AT BEDTIME
     Route: 048

REACTIONS (2)
  - Product dose omission issue [Unknown]
  - Product availability issue [Unknown]

NARRATIVE: CASE EVENT DATE: 20221205
